FAERS Safety Report 6025267-8 (Version None)
Quarter: 2008Q4

REPORT INFORMATION
  Report Type: 
  Country: None (occurrence: None)
  Receive Date: 20081231
  Receipt Date: 20081222
  Transmission Date: 20090506
  Serious: Yes (Other)
  Sender: FDA-Public Use
  Company Number: PHHY2008CA31958

PATIENT
  Sex: Female

DRUGS (7)
  1. ACLASTA [Suspect]
     Dosage: 5 MG, ONCE/SINGLE
     Route: 042
     Dates: start: 20081210
  2. CITALOPRAM [Concomitant]
     Dosage: 400 MG, QD
  3. SEROQUEL [Concomitant]
     Dosage: 100 MG, QD
  4. PREVACID [Concomitant]
     Dosage: 30 MG, QD
  5. DICETEL [Concomitant]
     Dosage: 50 MG, QD
  6. VITAMIN D [Concomitant]
     Dosage: 800 IU, QD
  7. CALCIUM [Concomitant]
     Dosage: 1500 MG, QD

REACTIONS (5)
  - CHEST PAIN [None]
  - HEADACHE [None]
  - NECK PAIN [None]
  - PAIN IN EXTREMITY [None]
  - TOOTH DISORDER [None]
